FAERS Safety Report 13518153 (Version 1)
Quarter: 2017Q2

REPORT INFORMATION
  Report Type: Spontaneous
  Country: FR (occurrence: FR)
  Receive Date: 20170505
  Receipt Date: 20170505
  Transmission Date: 20170830
  Serious: Yes (Hospitalization)
  Sender: FDA-Public Use
  Company Number: FR-ALLERGAN-1717257US

PATIENT
  Age: 1 Day
  Sex: Male
  Weight: .34 kg

DRUGS (2)
  1. PAROXETINE. [Suspect]
     Active Substance: PAROXETINE
     Indication: OBSESSIVE-COMPULSIVE DISORDER
     Dosage: 20 MG, QD
     Route: 064
     Dates: start: 20170325, end: 20170403
  2. ESCITALOPRAM OXALATE - BP [Suspect]
     Active Substance: ESCITALOPRAM OXALATE
     Indication: OBSESSIVE-COMPULSIVE DISORDER
     Dosage: 20 MG, QD
     Route: 064
     Dates: start: 20160701, end: 20170324

REACTIONS (3)
  - Foetal exposure during pregnancy [Unknown]
  - Hypotonia neonatal [Recovered/Resolved]
  - Neonatal respiratory distress syndrome [Recovered/Resolved]

NARRATIVE: CASE EVENT DATE: 20170403
